FAERS Safety Report 7104949-0 (Version None)
Quarter: 2010Q4

REPORT INFORMATION
  Report Type: 
  Country: None (occurrence: None)
  Receive Date: 20101116
  Receipt Date: 20101102
  Transmission Date: 20110411
  Serious: Yes (Hospitalization, Other)
  Sender: FDA-Public Use
  Company Number: PHHY2010FR74586

PATIENT
  Age: 71 Year
  Sex: Male

DRUGS (8)
  1. NISIS [Suspect]
     Dosage: 1 DF, QD
     Route: 048
     Dates: end: 20100909
  2. MABTHERA [Suspect]
     Dosage: 600 MG PER DAY
     Route: 042
     Dates: start: 20100809, end: 20100809
  3. CARBOPLATIN [Suspect]
     Dosage: UNK
     Route: 042
     Dates: start: 20100809, end: 20100809
  4. ARACYTINE [Suspect]
     Dosage: 1900 MG, BID
     Route: 042
     Dates: start: 20100809, end: 20100809
  5. DEXAMETHASONE SODIUM PHOSPHATE [Suspect]
     Dosage: 40 MG, BID
     Route: 042
     Dates: start: 20100809, end: 20100810
  6. VALACYCLOVIR HYDROCHLORIDE [Suspect]
     Dosage: UNK
     Route: 048
     Dates: start: 20100909
  7. SOTALEX [Concomitant]
     Dosage: 80 MG (2/DAY)
  8. KARDEGIC [Concomitant]
     Dosage: 160 MG/ DAY

REACTIONS (7)
  - ANAEMIA [None]
  - ASTHENIA [None]
  - LEUKOPENIA [None]
  - NEUTROPENIA [None]
  - PANCYTOPENIA [None]
  - PYREXIA [None]
  - THROMBOCYTOPENIA [None]
